FAERS Safety Report 12397963 (Version 1)
Quarter: 2016Q2

REPORT INFORMATION
  Report Type: Spontaneous
  Country: AU (occurrence: AU)
  Receive Date: 20160524
  Receipt Date: 20160524
  Transmission Date: 20160815
  Serious: Yes (Other)
  Sender: FDA-Public Use
  Company Number: AU-ACTAVIS PTY LTD-2016-10677

PATIENT
  Age: 45 Year
  Sex: Male
  Weight: 102 kg

DRUGS (5)
  1. FLUVOXAMINE [Concomitant]
     Active Substance: FLUVOXAMINE
     Indication: PRODUCT USED FOR UNKNOWN INDICATION
     Dosage: 300 MG, DAILY
     Route: 065
  2. NICOTINE. [Suspect]
     Active Substance: NICOTINE
     Indication: NICOTINE DEPENDENCE
     Dosage: 200 MG, TOTAL - 50 PIECES OF 4-MG
     Route: 002
  3. NICOTINE. [Suspect]
     Active Substance: NICOTINE
     Dosage: 100 MG, TOTAL - 50 PIECES OF 2-MG NICOTINE GUM
     Route: 002
  4. DEXAMPHETAMINE [Concomitant]
     Active Substance: AMPHETAMINE
     Indication: PRODUCT USED FOR UNKNOWN INDICATION
     Dosage: 30-40 MG DAILY
     Route: 065
  5. TESTOSTERONE. [Concomitant]
     Active Substance: TESTOSTERONE
     Indication: MUSCLE BUILDING THERAPY
     Dosage: UNK
     Route: 065

REACTIONS (8)
  - Pain in jaw [Recovered/Resolved]
  - Drug withdrawal syndrome [Recovered/Resolved]
  - Product adhesion issue [None]
  - Nicotine dependence [None]
  - Tooth disorder [Recovered/Resolved]
  - Overdose [Recovered/Resolved]
  - Nicotine dependence [Recovered/Resolved]
  - Hyperhidrosis [Recovered/Resolved]
